FAERS Safety Report 25432352 (Version 1)
Quarter: 2025Q2

REPORT INFORMATION
  Report Type: Spontaneous
  Country: US (occurrence: US)
  Receive Date: 20250613
  Receipt Date: 20250613
  Transmission Date: 20250717
  Serious: No
  Sender: AUROBINDO
  Company Number: US-AUROBINDO-AUR-APL-2024-044517

PATIENT
  Sex: Male

DRUGS (1)
  1. OLMESARTAN MEDOXOMIL [Suspect]
     Active Substance: OLMESARTAN MEDOXOMIL
     Indication: Blood pressure measurement
     Route: 065
     Dates: start: 202408

REACTIONS (6)
  - Diarrhoea [Unknown]
  - Dyspepsia [Unknown]
  - Somnolence [Unknown]
  - Dysuria [Unknown]
  - Fatigue [Unknown]
  - Drug ineffective [Unknown]
